FAERS Safety Report 7653293-1 (Version None)
Quarter: 2011Q3

REPORT INFORMATION
  Report Type: 
  Country: None (occurrence: None)
  Receive Date: 20110803
  Receipt Date: 20110720
  Transmission Date: 20111222
  Serious: Yes (Hospitalization, Other)
  Sender: FDA-Public Use
  Company Number: US-ELI_LILLY_AND_COMPANY-US201103002373

PATIENT
  Sex: Female

DRUGS (24)
  1. FORTEO [Suspect]
     Indication: OSTEOPOROSIS
     Dosage: 20 UG, DAILY (1/D)
     Route: 058
     Dates: start: 20110101
  2. ALPRAZOLAM [Concomitant]
  3. DOMPERIDONE [Concomitant]
  4. DIGOXIN [Concomitant]
  5. MULTI-VITAMIN [Concomitant]
  6. FOLIC ACID [Concomitant]
  7. COREG [Concomitant]
  8. LASIX [Concomitant]
  9. PROTONIX [Concomitant]
  10. FORTEO [Suspect]
     Dosage: 20 UG, QD
     Route: 058
  11. FORTEO [Suspect]
     Dosage: 20 UG, QD
     Route: 058
     Dates: end: 20110610
  12. PLAVIX [Concomitant]
  13. LEVOTHYROXINE SODIUM [Concomitant]
  14. LISINOPRIL [Concomitant]
  15. POTASSIUM [Concomitant]
  16. VOLTAREN                                /SCH/ [Concomitant]
  17. RANITIDINE [Concomitant]
  18. VITAMIN D [Concomitant]
  19. ALERTEC [Concomitant]
  20. OMEPRAZOLE [Concomitant]
  21. ALBUTEROL SULFATE AUTOHALER [Concomitant]
  22. CALCIUM ACETATE [Concomitant]
  23. FLUOXETINE HYDROCHLORIDE [Concomitant]
  24. ADVAIR DISKUS 100/50 [Concomitant]

REACTIONS (14)
  - OESOPHAGEAL PAIN [None]
  - FUNGAL INFECTION [None]
  - ABDOMINAL PAIN UPPER [None]
  - ABDOMINAL DISCOMFORT [None]
  - CYSTITIS [None]
  - VOMITING [None]
  - CHEST PAIN [None]
  - DIARRHOEA [None]
  - PAIN IN EXTREMITY [None]
  - MYOCARDIAL INFARCTION [None]
  - MUSCLE SPASMS [None]
  - STRESS CARDIOMYOPATHY [None]
  - VASCULAR OCCLUSION [None]
  - PNEUMONIA [None]
